FAERS Safety Report 6389250-5 (Version None)
Quarter: 2009Q4

REPORT INFORMATION
  Report Type: 
  Country: None (occurrence: None)
  Receive Date: 20091006
  Receipt Date: 20090925
  Transmission Date: 20100525
  Serious: Yes (Other)
  Sender: FDA-Public Use
  Company Number: PHHY2009ES41493

PATIENT
  Age: 72 Year
  Sex: Female

DRUGS (5)
  1. RASILEZ [Suspect]
     Indication: HYPERTENSION
     Dosage: 300 MG, QD
     Route: 048
     Dates: start: 20081201, end: 20090107
  2. RIVOTRIL [Concomitant]
     Dosage: 2.5 MG/ML DROPS
  3. ZADITEN [Concomitant]
     Dosage: 5 ML
  4. VENLAFAXINE HCL [Concomitant]
  5. ATACAND HCT [Concomitant]

REACTIONS (3)
  - ASTHENIA [None]
  - HYPOTENSION [None]
  - MALAISE [None]
